FAERS Safety Report 20824276 (Version 1)
Quarter: 2022Q2

REPORT INFORMATION
  Report Type: Spontaneous
  Country: US (occurrence: US)
  Receive Date: 20220513
  Receipt Date: 20220513
  Transmission Date: 20220721
  Serious: No
  Sender: FDA-Public Use
  Company Number: US-BRISTOL-MYERS SQUIBB COMPANY-2022-012272

PATIENT
  Age: 74 Year
  Sex: Female

DRUGS (1)
  1. REVLIMID [Suspect]
     Active Substance: LENALIDOMIDE
     Indication: Acute lymphocytic leukaemia
     Dosage: 25 MILLIGRAM, 14DAYS ON, 7 DAYS OFF
     Route: 048
     Dates: start: 20220224

REACTIONS (3)
  - Fatigue [Unknown]
  - Rash [Unknown]
  - Intentional product use issue [Unknown]
